FAERS Safety Report 4445971-2 (Version None)
Quarter: 2004Q3

REPORT INFORMATION
  Report Type: 
  Country: None (occurrence: None)
  Receive Date: 20040910
  Receipt Date: 20040721
  Transmission Date: 20050211
  Serious: Yes (Hospitalization)
  Sender: FDA-Public Use
  Company Number: JP-MERCK-0407USA01830

PATIENT
  Age: 70 Year
  Sex: Female

DRUGS (9)
  1. RIMATIL [Suspect]
     Indication: RHEUMATOID ARTHRITIS
     Route: 048
     Dates: end: 20040624
  2. PROHEPARUM [Concomitant]
     Route: 048
     Dates: end: 20040624
  3. PEPCID RPD [Suspect]
     Indication: GASTRIC ULCER
     Route: 048
     Dates: start: 20031113, end: 20040624
  4. FOLIAMIN [Concomitant]
     Route: 048
     Dates: start: 20040422, end: 20040527
  5. GLYCYRON [Concomitant]
     Route: 048
     Dates: start: 20040603, end: 20040624
  6. GASLON [Suspect]
     Indication: GASTRITIS
     Route: 048
     Dates: start: 20040422, end: 20040527
  7. RHEUMATREX [Suspect]
     Indication: RHEUMATOID ARTHRITIS
     Route: 048
     Dates: start: 20030612, end: 20040311
  8. RHEUMATREX [Suspect]
     Route: 048
     Dates: start: 20040422, end: 20040527
  9. RHEUMATREX [Suspect]
     Route: 048
     Dates: start: 20040325, end: 20040422

REACTIONS (5)
  - ALANINE AMINOTRANSFERASE INCREASED [None]
  - ASPARTATE AMINOTRANSFERASE INCREASED [None]
  - CONDITION AGGRAVATED [None]
  - LIVER DISORDER [None]
  - STOMATITIS [None]
